FAERS Safety Report 10802512 (Version 2)
Quarter: 2015Q1

REPORT INFORMATION
  Report Type: Spontaneous
  Country: FR (occurrence: FR)
  Receive Date: 20150217
  Receipt Date: 20150225
  Transmission Date: 20150721
  Serious: Yes (Hospitalization)
  Sender: FDA-Public Use
  Company Number: PHHY2015FR017702

PATIENT
  Age: 19 Year
  Sex: Female

DRUGS (5)
  1. DEPAKINE [Concomitant]
     Active Substance: VALPROATE SODIUM
     Indication: PRODUCT USED FOR UNKNOWN INDICATION
     Route: 065
     Dates: start: 201410, end: 201412
  2. TEGRETOL [Suspect]
     Active Substance: CARBAMAZEPINE
     Indication: PRODUCT USED FOR UNKNOWN INDICATION
     Dosage: 200 MG, UNK
     Route: 048
     Dates: start: 20141118, end: 20141201
  3. TEGRETOL [Suspect]
     Active Substance: CARBAMAZEPINE
     Dosage: 300 MG, BID
     Route: 048
     Dates: start: 20141201, end: 20141219
  4. NEURONTIN [Concomitant]
     Active Substance: GABAPENTIN
     Indication: PRODUCT USED FOR UNKNOWN INDICATION
     Route: 065
  5. URBANYL [Concomitant]
     Active Substance: CLOBAZAM
     Indication: EPILEPSY
     Route: 065

REACTIONS (6)
  - Hepatocellular injury [Recovering/Resolving]
  - Rash [Recovered/Resolved]
  - Drug reaction with eosinophilia and systemic symptoms [Recovering/Resolving]
  - Lymphadenopathy [Unknown]
  - Pyrexia [Recovered/Resolved]
  - Cholestasis [Not Recovered/Not Resolved]

NARRATIVE: CASE EVENT DATE: 20141219
